FAERS Safety Report 23699406 (Version 1)
Quarter: 2024Q2

REPORT INFORMATION
  Report Type: Spontaneous
  Country: ZA (occurrence: None)
  Receive Date: 20240402
  Receipt Date: 20240402
  Transmission Date: 20240716
  Serious: Yes (Other)
  Sender: FDA-Public Use
  Company Number: 2024A074488

PATIENT
  Age: 63 Year
  Sex: Male

DRUGS (9)
  1. DAPAGLIFLOZIN PROPANEDIOL [Suspect]
     Active Substance: DAPAGLIFLOZIN PROPANEDIOL
     Indication: Diabetes mellitus
     Dosage: 10.0MG UNKNOWN
     Route: 048
  2. MEZIBE [Concomitant]
     Indication: Hyperlipidaemia
     Dosage: 10.0MG UNKNOWN
     Route: 048
  3. RIVAROXABAN [Concomitant]
     Active Substance: RIVAROXABAN
     Indication: Blood disorder
     Dosage: 20.0MG UNKNOWN
     Route: 048
  4. BISOPROLOL FUMARATE [Concomitant]
     Active Substance: BISOPROLOL FUMARATE
     Indication: Hypertension
     Dosage: 5.0MG UNKNOWN
     Route: 048
  5. FENOTEROL HYDROBROMIDE [Concomitant]
     Active Substance: FENOTEROL HYDROBROMIDE
     Indication: Asthma
     Dosage: UNKNOWN
     Route: 055
  6. LIPOGEN [Concomitant]
     Indication: Blood cholesterol
     Dosage: 80.0MG UNKNOWN
     Route: 048
  7. FUROSEMIDE [Concomitant]
     Active Substance: FUROSEMIDE
     Indication: Hypertension
     Dosage: 40.0MG UNKNOWN
     Route: 048
  8. PANTOCID [Concomitant]
     Indication: Ulcer
     Dosage: 40.0MG UNKNOWN
     Route: 048
  9. TAMOLTRA [Concomitant]
     Indication: Pain
     Dosage: UNKNOWN
     Route: 048

REACTIONS (1)
  - Illness [Unknown]
